FAERS Safety Report 9705489 (Version 1)
Quarter: 2013Q4

REPORT INFORMATION
  Report Type: Spontaneous
  Country: BR (occurrence: BR)
  Receive Date: 20131122
  Receipt Date: 20131122
  Transmission Date: 20140711
  Serious: Yes (Other)
  Sender: FDA-Public Use
  Company Number: BR-ELI_LILLY_AND_COMPANY-BR201311003454

PATIENT
  Age: 62 Year
  Sex: Female

DRUGS (7)
  1. HUMULIN N [Suspect]
     Indication: PRODUCT USED FOR UNKNOWN INDICATION
     Dosage: UNK, UNKNOWN
     Route: 065
  2. HUMULIN N [Suspect]
     Dosage: 52 IU, SINGLE
     Route: 065
     Dates: start: 20131111, end: 20131111
  3. HUMULIN R [Suspect]
     Indication: PRODUCT USED FOR UNKNOWN INDICATION
     Dosage: UNK, UNKNOWN
     Route: 065
  4. HUMULIN R [Suspect]
     Dosage: 50 IU, SINGLE
     Route: 065
     Dates: start: 20131028, end: 20131028
  5. HUMULIN R [Suspect]
     Dosage: 10 IU, SINGLE
     Route: 065
     Dates: start: 20131111, end: 20131111
  6. TRAMADOL HYDROCHLORIDE [Concomitant]
     Indication: NEUROPATHIC ARTHROPATHY
     Dosage: UNK, UNKNOWN
     Route: 065
  7. CAPTOPRIL [Concomitant]
     Indication: PRODUCT USED FOR UNKNOWN INDICATION
     Dosage: UNK, UNKNOWN
     Route: 065

REACTIONS (4)
  - Hyperglycaemia [Unknown]
  - Hearing impaired [Unknown]
  - Wrong drug administered [Unknown]
  - Feeling abnormal [Unknown]
